FAERS Safety Report 9688884 (Version 1)
Quarter: 2013Q4

REPORT INFORMATION
  Report Type: Spontaneous
  Country: TR (occurrence: None)
  Receive Date: 20131112
  Receipt Date: 20131112
  Transmission Date: 20140711
  Serious: Yes (Hospitalization, Other)
  Sender: FDA-Public Use
  Company Number: 2013-110004

PATIENT
  Age: 29 Year
  Sex: Female

DRUGS (3)
  1. D-PENICILLAMINE [Suspect]
     Indication: HEPATO-LENTICULAR DEGENERATION
  2. ZINC ACETATE [Suspect]
     Indication: HEPATO-LENTICULAR DEGENERATION
  3. CARBAMAZEPINE (CARBAMAZEPINE) [Concomitant]

REACTIONS (3)
  - Complex partial seizures [None]
  - Blood copper decreased [None]
  - Convulsion [None]
